FAERS Safety Report 16747895 (Version 1)
Quarter: 2019Q3

REPORT INFORMATION
  Report Type: Spontaneous
  Country: US (occurrence: US)
  Receive Date: 20190827
  Receipt Date: 20190827
  Transmission Date: 20191005
  Serious: Yes (Hospitalization, Other)
  Sender: FDA-Public Use
  Company Number: US-ELI_LILLY_AND_COMPANY-US201908008427

PATIENT
  Sex: Female

DRUGS (5)
  1. HUMULIN 70/30 [Suspect]
     Active Substance: INSULIN HUMAN
     Dosage: 60 U, BID
     Route: 058
  2. HUMULIN R [Suspect]
     Active Substance: INSULIN HUMAN
     Indication: TYPE 2 DIABETES MELLITUS
     Dosage: UNK, PRN
     Route: 065
  3. TORSEMIDE. [Concomitant]
     Active Substance: TORSEMIDE
     Indication: DIURETIC THERAPY
     Dosage: 100 MG, DAILY
  4. JANUVIA [Concomitant]
     Active Substance: SITAGLIPTIN PHOSPHATE
     Indication: TYPE 2 DIABETES MELLITUS
     Dosage: 100 MG, DAILY
  5. HUMULIN 70/30 [Suspect]
     Active Substance: INSULIN HUMAN
     Indication: TYPE 2 DIABETES MELLITUS
     Dosage: 60 U, BID
     Route: 058
     Dates: start: 2014

REACTIONS (14)
  - Respiratory syncytial virus infection [Unknown]
  - Tongue disorder [Unknown]
  - Dry mouth [Unknown]
  - Hypoaesthesia [Unknown]
  - Blood glucose decreased [Unknown]
  - Pneumonia [Unknown]
  - Blood glucose increased [Unknown]
  - Dehydration [Unknown]
  - Medical device site urticaria [Unknown]
  - Plicated tongue [Unknown]
  - Swollen tongue [Unknown]
  - Medical device site bruise [Unknown]
  - Pain [Unknown]
  - Blood glucose increased [Unknown]

NARRATIVE: CASE EVENT DATE: 2018
